FAERS Safety Report 9390318 (Version 7)
Quarter: 2015Q1

REPORT INFORMATION
  Report Type: Report from Study
  Country: US (occurrence: US)
  Receive Date: 20130709
  Receipt Date: 20150220
  Transmission Date: 20150721
  Serious: Yes (Hospitalization, Other)
  Sender: FDA-Public Use
  Company Number: US-ALEXION-A201301513

PATIENT

DRUGS (13)
  1. CELLCEPT [Concomitant]
     Active Substance: MYCOPHENOLATE MOFETIL\MYCOPHENOLATE MOFETIL HYDROCHLORIDE
     Dosage: 500 MG, Q12D
     Route: 065
     Dates: start: 20111205
  2. VALCYTE [Concomitant]
     Active Substance: VALGANCICLOVIR HYDROCHLORIDE
     Dosage: 450 MG, QIW
     Route: 048
     Dates: start: 20111205
  3. SOLIRIS [Suspect]
     Active Substance: ECULIZUMAB
     Dosage: UNK
     Route: 042
  4. PREDNISONE. [Concomitant]
     Active Substance: PREDNISONE
     Dosage: 22.5 MG, FOR 2 DAYS
     Dates: start: 20111205
  5. MIRALAX [Concomitant]
     Active Substance: POLYETHYLENE GLYCOL 3350
     Dosage: 17 G, QD
     Route: 065
     Dates: start: 20111205
  6. PREDNISONE. [Concomitant]
     Active Substance: PREDNISONE
     Dosage: 56.25 MG, FOR 2 DAYS
     Route: 065
     Dates: start: 20111205
  7. PREDNISONE. [Concomitant]
     Active Substance: PREDNISONE
     Dosage: 33.75 MG, FOR 2 DAYS
     Dates: start: 20111205
  8. SOLIRIS [Suspect]
     Active Substance: ECULIZUMAB
     Indication: HAEMOLYTIC URAEMIC SYNDROME
     Dosage: 900 MG, QW
     Route: 042
     Dates: start: 20111206, end: 201208
  9. SOLIRIS [Suspect]
     Active Substance: ECULIZUMAB
     Dosage: UNK
     Route: 042
  10. SOLIRIS [Suspect]
     Active Substance: ECULIZUMAB
     Dosage: 1200 MG, Q2W
     Route: 042
     Dates: end: 20121024
  11. BACTRIM [Concomitant]
     Active Substance: SULFAMETHOXAZOLE\TRIMETHOPRIM
     Indication: ANTIBIOTIC THERAPY
     Dosage: 400 MG, QHS
     Route: 065
     Dates: start: 20111205
  12. PREDNISONE. [Concomitant]
     Active Substance: PREDNISONE
     Dosage: 45 MG, FOR 2 DAYS
     Dates: start: 20111205
  13. PROTONIX [Concomitant]
     Active Substance: PANTOPRAZOLE SODIUM
     Dosage: 40 MG, BID
     Route: 065
     Dates: start: 20111205

REACTIONS (9)
  - Platelet count decreased [Not Recovered/Not Resolved]
  - Thrombotic microangiopathy [Unknown]
  - Drug ineffective [Unknown]
  - Methylenetetrahydrofolate reductase deficiency [Unknown]
  - Cerebrovascular accident [Unknown]
  - Alopecia [Unknown]
  - Diarrhoea [Unknown]
  - Parvovirus infection [Unknown]
  - Abdominal pain [Unknown]

NARRATIVE: CASE EVENT DATE: 20120618
